FAERS Safety Report 9757839 (Version 1)
Quarter: 2013Q4

REPORT INFORMATION
  Report Type: Report from Study
  Country: US (occurrence: US)
  Receive Date: 20131216
  Receipt Date: 20131216
  Transmission Date: 20140711
  Serious: Yes (Hospitalization)
  Sender: FDA-Public Use
  Company Number: US-ROCHE-1318046

PATIENT
  Age: 86 Year
  Sex: Female

DRUGS (2)
  1. ZELBORAF [Suspect]
     Indication: METASTATIC MALIGNANT MELANOMA
     Route: 065
  2. SIMVASTATIN [Concomitant]

REACTIONS (7)
  - Chest pain [Unknown]
  - Blood pressure increased [Unknown]
  - Dermatitis acneiform [Unknown]
  - Swelling face [Unknown]
  - Hiatus hernia [Unknown]
  - Rash [Recovering/Resolving]
  - Pyrexia [Recovered/Resolved]
